FAERS Safety Report 10269709 (Version 1)
Quarter: 2014Q2

REPORT INFORMATION
  Report Type: Spontaneous
  Country: FR (occurrence: None)
  Receive Date: 20140625
  Receipt Date: 20140625
  Transmission Date: 20141212
  Serious: Yes (Hospitalization)
  Sender: FDA-Public Use
  Company Number: 2014-19778

PATIENT
  Age: 64 Year
  Sex: Female

DRUGS (1)
  1. EYLEA (AFLIBERCEPT) INJECTION)AFLIBERCEPT) [Suspect]
     Indication: AGE-RELATED MACULAR DEGENERATION
     Dosage: 1 DF, UNK, INTRAOCULAR
     Route: 031
     Dates: start: 201312, end: 201312

REACTIONS (2)
  - Visual acuity reduced [None]
  - Conjunctival haemorrhage [None]
